FAERS Safety Report 18187079 (Version 14)
Quarter: 2025Q1

REPORT INFORMATION
  Report Type: Report from Study
  Country: US (occurrence: US)
  Receive Date: 20200824
  Receipt Date: 20250116
  Transmission Date: 20250408
  Serious: Yes (Hospitalization, Other)
  Sender: TAKEDA
  Company Number: US-SHIRE-US202027165

PATIENT
  Age: 73 Year
  Sex: Female
  Weight: 79 kg

DRUGS (54)
  1. HUMAN IMMUNOGLOBULIN G [Suspect]
     Active Substance: HUMAN IMMUNOGLOBULIN G
     Indication: Chronic inflammatory demyelinating polyradiculoneuropathy
     Dosage: 75 GRAM, Q3WEEKS
     Dates: start: 20151103
  2. HUMAN IMMUNOGLOBULIN G [Suspect]
     Active Substance: HUMAN IMMUNOGLOBULIN G
     Indication: Psoriatic arthropathy
     Dosage: 80 GRAM, Q3WEEKS
  3. HUMAN IMMUNOGLOBULIN G [Suspect]
     Active Substance: HUMAN IMMUNOGLOBULIN G
     Indication: Osteoporosis
  4. DOXYCYCLINE [Suspect]
     Active Substance: DOXYCYCLINE
     Indication: Product used for unknown indication
  5. DIPHENHYDRAMINE [Concomitant]
     Active Substance: DIPHENHYDRAMINE
  6. STELARA [Concomitant]
     Active Substance: USTEKINUMAB
  7. ALLEGRA ALLERGY [Concomitant]
     Active Substance: FEXOFENADINE HYDROCHLORIDE
  8. BIOTIN [Concomitant]
     Active Substance: BIOTIN
  9. MELATONIN [Concomitant]
     Active Substance: MELATONIN
     Dosage: 10 MILLIGRAM, QD
  10. XARELTO [Concomitant]
     Active Substance: RIVAROXABAN
     Dosage: 20 MILLIGRAM, QD
  11. XOPENEX [Concomitant]
     Active Substance: LEVALBUTEROL HYDROCHLORIDE
  12. PROLIA [Concomitant]
     Active Substance: DENOSUMAB
  13. VOLTAREN [Concomitant]
     Active Substance: DICLOFENAC SODIUM
  14. GABAPENTIN [Concomitant]
     Active Substance: GABAPENTIN
     Dosage: 6 DOSAGE FORM, QD
     Dates: start: 20240608
  15. ACETAMINOPHEN [Concomitant]
     Active Substance: ACETAMINOPHEN
  16. LIDOCAINE [Concomitant]
     Active Substance: LIDOCAINE
  17. SODIUM CHLORIDE [Concomitant]
     Active Substance: SODIUM CHLORIDE
  18. EPINEPHRINE [Concomitant]
     Active Substance: EPINEPHRINE
  19. OTEZLA [Concomitant]
     Active Substance: APREMILAST
  20. MINERALS\VITAMINS [Concomitant]
     Active Substance: MINERALS\VITAMINS
  21. AREDSAN [Concomitant]
  22. SINGULAIR [Concomitant]
     Active Substance: MONTELUKAST SODIUM
  23. LEVOXYL [Concomitant]
     Active Substance: LEVOTHYROXINE SODIUM
  24. CRANBERRY [Concomitant]
     Active Substance: CRANBERRY
     Dosage: UNK UNK, QD
  25. MINERALS\VITAMINS [Concomitant]
     Active Substance: MINERALS\VITAMINS
  26. Lmx [Concomitant]
  27. LEVALBUTEROL TARTRATE [Concomitant]
     Active Substance: LEVALBUTEROL TARTRATE
  28. BREO ELLIPTA [Concomitant]
     Active Substance: FLUTICASONE FUROATE\VILANTEROL TRIFENATATE
  29. DULOXETINE HYDROCHLORIDE [Concomitant]
     Active Substance: DULOXETINE HYDROCHLORIDE
     Dosage: 2 DOSAGE FORM, QD
  30. FAMOTIDINE [Concomitant]
     Active Substance: FAMOTIDINE
  31. LEVOTHYROXINE [Concomitant]
     Active Substance: LEVOTHYROXINE
  32. PANTOPRAZOLE SODIUM [Concomitant]
     Active Substance: PANTOPRAZOLE SODIUM
  33. MYCOPHENOLATE MOFETIL [Concomitant]
     Active Substance: MYCOPHENOLATE MOFETIL
     Indication: Chronic inflammatory demyelinating polyradiculoneuropathy
     Dosage: 3 DOSAGE FORM, QD
     Dates: start: 20240328
  34. TREMFYA [Concomitant]
     Active Substance: GUSELKUMAB
  35. PFIZER-BIONTECH COVID-19 VACCINE [Concomitant]
     Active Substance: TOZINAMERAN
  36. VITAMIN D [Concomitant]
     Active Substance: VITAMIN D NOS
  37. GEMTESA [Concomitant]
     Active Substance: VIBEGRON
  38. CALCIUM [Concomitant]
     Active Substance: CALCIUM
     Dosage: 2 DOSAGE FORM, QD
  39. LOSARTAN POTASSIUM [Concomitant]
     Active Substance: LOSARTAN POTASSIUM
  40. MODERNA COVID-19 VACCINE [Concomitant]
     Active Substance: ELASOMERAN
  41. COSENTYX [Concomitant]
     Active Substance: SECUKINUMAB
     Dosage: UNK UNK, MONTHLY
  42. DIPHENHYDRAMINE HYDROCHLORIDE [Concomitant]
     Active Substance: DIPHENHYDRAMINE HYDROCHLORIDE
  43. PANTOPRAZOLE [Concomitant]
     Active Substance: PANTOPRAZOLE
     Dosage: 40 MILLIGRAM, QD
  44. DULOXETINE [Concomitant]
     Active Substance: DULOXETINE
  45. LEVALBUTEROL [Concomitant]
     Active Substance: LEVALBUTEROL
  46. CELLCEPT [Concomitant]
     Active Substance: MYCOPHENOLATE MOFETIL
  47. CELLCEPT [Concomitant]
     Active Substance: MYCOPHENOLATE MOFETIL
     Dosage: UNK, QD
  48. QULIPTA [Concomitant]
     Active Substance: ATOGEPANT
     Indication: Chronic inflammatory demyelinating polyradiculoneuropathy
     Dosage: 1 DOSAGE FORM, QD
     Dates: start: 20240328
  49. NEURONTIN [Concomitant]
     Active Substance: GABAPENTIN
     Indication: Neuralgia
     Dosage: 6 DOSAGE FORM, QD
     Dates: start: 20231201
  50. MONTELUKAST SODIUM [Concomitant]
     Active Substance: MONTELUKAST SODIUM
  51. FLUTICASONE PROPIONATE [Concomitant]
     Active Substance: FLUTICASONE PROPIONATE
  52. PEPCID [Concomitant]
     Active Substance: FAMOTIDINE
  53. LOSARTAN [Concomitant]
     Active Substance: LOSARTAN
     Dosage: 1 DOSAGE FORM, QD
  54. PNEUMOVAX 23 [Concomitant]
     Active Substance: PNEUMOCOCCAL VACCINE, POLYVALENT 23

REACTIONS (15)
  - Kidney infection [Unknown]
  - Oesophageal infection [Unknown]
  - Headache [Recovering/Resolving]
  - Multiple allergies [Unknown]
  - Arthritis [Unknown]
  - Urinary tract infection [Not Recovered/Not Resolved]
  - COVID-19 [Unknown]
  - Product dose omission issue [Unknown]
  - Inappropriate schedule of product administration [Unknown]
  - Fall [Unknown]
  - Intervertebral disc space narrowing [Unknown]
  - Pain [Unknown]
  - Contusion [Recovering/Resolving]
  - Rash [Unknown]
  - Fatigue [Unknown]

NARRATIVE: CASE EVENT DATE: 20220831
